FAERS Safety Report 4358616-7 (Version None)
Quarter: 2004Q2

REPORT INFORMATION
  Report Type: 
  Country: None (occurrence: None)
  Receive Date: 20040512
  Receipt Date: 20040512
  Transmission Date: 20050107
  Serious: Yes (Hospitalization)
  Sender: FDA-Public Use
  Company Number: None

PATIENT
  Age: 70 Year
  Sex: Female
  Weight: 109 kg

DRUGS (9)
  1. OMNIPAQUE 240 [Suspect]
     Indication: DIAGNOSTIC PROCEDURE
     Dosage: INFUSED DURING PROCEDURE
  2. NITROGLYCERIN IV [Concomitant]
  3. HEPARIN [Concomitant]
  4. INTEGRILIN [Concomitant]
  5. PLAVIX [Concomitant]
  6. NEURONTIN [Concomitant]
  7. TEVON [Concomitant]
  8. FUROSEMIDE [Concomitant]
  9. TOPROL-XL [Concomitant]

REACTIONS (1)
  - RENAL FAILURE ACUTE [None]
